FAERS Safety Report 5054590-9 (Version None)
Quarter: 2006Q2

REPORT INFORMATION
  Report Type: 
  Country: None (occurrence: None)
  Receive Date: 20060616
  Receipt Date: 20060417
  Transmission Date: 20061013
  Serious: No
  Sender: FDA-Public Use
  Company Number: 2006US000509

PATIENT
  Age: 80 Year
  Sex: Male
  Weight: 72.6 kg

DRUGS (1)
  1. VESICARE [Suspect]
     Indication: INCONTINENCE
     Dosage: UID/QD

REACTIONS (1)
  - CONSTIPATION [None]
